FAERS Safety Report 8165249-3 (Version None)
Quarter: 2012Q1

REPORT INFORMATION
  Report Type: 
  Country: None (occurrence: None)
  Receive Date: 20120222
  Receipt Date: 20120222
  Transmission Date: 20120608
  Serious: Yes (Other)
  Sender: FDA-Public Use
  Company Number: None

PATIENT
  Sex: Female
  Weight: 8.1647 kg

DRUGS (1)
  1. ALBUTEROL SULFATE [Suspect]
     Indication: COUGH
     Dosage: 2ML/SUSPENSION 2X/DAY NEBULIZER/INH
     Route: 055
     Dates: start: 20120101, end: 20120120

REACTIONS (4)
  - DIARRHOEA [None]
  - ACROCHORDON [None]
  - FEELING JITTERY [None]
  - CANDIDA NAPPY RASH [None]
